FAERS Safety Report 14684253 (Version 2)
Quarter: 2018Q2

REPORT INFORMATION
  Report Type: Spontaneous
  Country: US (occurrence: US)
  Receive Date: 20180327
  Receipt Date: 20180502
  Transmission Date: 20180711
  Serious: Yes (Other)
  Sender: FDA-Public Use
  Company Number: US-UNITED THERAPEUTICS-UNT-2018-002936

PATIENT
  Sex: Female

DRUGS (2)
  1. REMODULIN [Suspect]
     Active Substance: TREPROSTINIL
     Indication: PULMONARY ARTERIAL HYPERTENSION
     Dosage: 0.0515 ?G/KG, CONTINUING
     Route: 041
     Dates: start: 20170105
  2. REMODULIN [Suspect]
     Active Substance: TREPROSTINIL
     Dosage: 0.0502 ?G/KG, CONTINUING
     Route: 041

REACTIONS (4)
  - Headache [Unknown]
  - Myalgia [Not Recovered/Not Resolved]
  - Palpitations [Recovered/Resolved]
  - Neuralgia [Not Recovered/Not Resolved]
